FAERS Safety Report 9460289 (Version 1)
Quarter: 2013Q3

REPORT INFORMATION
  Report Type: Spontaneous
  Country: US (occurrence: US)
  Receive Date: 20130815
  Receipt Date: 20130815
  Transmission Date: 20140515
  Serious: No
  Sender: FDA-Public Use
  Company Number: US-BAXTER-2013BAX013404

PATIENT
  Sex: 0

DRUGS (1)
  1. ADVATE [Suspect]
     Indication: HAEMARTHROSIS
     Route: 042

REACTIONS (4)
  - Haemorrhage [Unknown]
  - Joint destruction [Unknown]
  - Arthralgia [Unknown]
  - Mobility decreased [Unknown]
